FAERS Safety Report 20487054 (Version 3)
Quarter: 2022Q2

REPORT INFORMATION
  Report Type: Spontaneous
  Country: US (occurrence: None)
  Receive Date: 20220217
  Receipt Date: 20220629
  Transmission Date: 20220720
  Serious: Yes (Other)
  Sender: FDA-Public Use
  Company Number: 2022A066397

PATIENT
  Age: 60 Year
  Sex: Female
  Weight: 82.1 kg

DRUGS (41)
  1. PRILOSEC [Suspect]
     Active Substance: OMEPRAZOLE MAGNESIUM
     Indication: Gastrooesophageal reflux disease
     Route: 048
     Dates: start: 2012, end: 2016
  2. PRILOSEC [Suspect]
     Active Substance: OMEPRAZOLE MAGNESIUM
     Indication: Gastrooesophageal reflux disease
     Route: 048
     Dates: start: 1998, end: 2016
  3. PRILOSEC [Suspect]
     Active Substance: OMEPRAZOLE MAGNESIUM
     Indication: Gastrooesophageal reflux disease
     Dosage: GENERIC
     Route: 065
     Dates: start: 2014
  4. PRILOSEC OTC [Suspect]
     Active Substance: OMEPRAZOLE MAGNESIUM
     Indication: Gastrooesophageal reflux disease
     Route: 048
     Dates: start: 2012, end: 2016
  5. PRILOSEC OTC [Suspect]
     Active Substance: OMEPRAZOLE MAGNESIUM
     Indication: Gastrooesophageal reflux disease
     Route: 048
     Dates: start: 2003, end: 2016
  6. KETOCONAZOLE [Concomitant]
     Active Substance: KETOCONAZOLE
  7. PROMETHAZINE [Concomitant]
     Active Substance: PROMETHAZINE HYDROCHLORIDE
  8. AZELASTINE [Concomitant]
     Active Substance: AZELASTINE
  9. METHYLPREDNISOLONE [Concomitant]
     Active Substance: METHYLPREDNISOLONE
  10. TRIAMNICINOLONE [Concomitant]
  11. QSYMIA [Concomitant]
     Active Substance: PHENTERMINE HYDROCHLORIDE\TOPIRAMATE
  12. FINACEA [Concomitant]
     Active Substance: AZELAIC ACID
  13. ONDANSETRON [Concomitant]
     Active Substance: ONDANSETRON
  14. CEPHALEXIN [Concomitant]
     Active Substance: CEPHALEXIN
  15. VIGAMOX [Concomitant]
     Active Substance: MOXIFLOXACIN HYDROCHLORIDE
  16. METHACARBAM [Concomitant]
  17. MONTELUKAST [Concomitant]
     Active Substance: MONTELUKAST SODIUM
  18. NITROFURANTOIN [Concomitant]
     Active Substance: NITROFURANTOIN
  19. MYRBETERIQ [Concomitant]
  20. DUREZOL [Concomitant]
     Active Substance: DIFLUPREDNATE
  21. ILEVRO [Concomitant]
     Active Substance: NEPAFENAC
  22. ESTROGEL [Concomitant]
     Active Substance: ESTRADIOL
  23. CYMBALTA [Concomitant]
     Active Substance: DULOXETINE HYDROCHLORIDE
  24. IBUPROFEN [Concomitant]
     Active Substance: IBUPROFEN
  25. MUPIROCIN [Concomitant]
     Active Substance: MUPIROCIN
  26. PROGESTERONE [Concomitant]
     Active Substance: PROGESTERONE
  27. DESONIDE [Concomitant]
     Active Substance: DESONIDE
  28. FLUOCINONIDE [Concomitant]
     Active Substance: FLUOCINONIDE
  29. CILOSTAZOL [Concomitant]
     Active Substance: CILOSTAZOL
  30. OXYBUTYNIN [Concomitant]
     Active Substance: OXYBUTYNIN
  31. DIFLUCAN [Concomitant]
     Active Substance: FLUCONAZOLE
  32. TRAMADOL [Concomitant]
     Active Substance: TRAMADOL
     Indication: Pain
     Dates: start: 2013, end: 2018
  33. AZITHROMYCIN [Concomitant]
     Active Substance: AZITHROMYCIN
     Indication: Infection
     Dates: start: 2015
  34. LEVOFLOXACIN [Concomitant]
     Active Substance: LEVOFLOXACIN
     Indication: Infection
     Dates: start: 2015, end: 2019
  35. CIPROFLOXACIN [Concomitant]
     Active Substance: CIPROFLOXACIN
     Indication: Infection
     Dates: start: 2009, end: 2020
  36. NAPROXEN [Concomitant]
     Active Substance: NAPROXEN
     Indication: Pain
     Dates: start: 2009, end: 2013
  37. DICLOFENAC [Concomitant]
     Active Substance: DICLOFENAC
     Indication: Pain
     Dates: start: 2012, end: 2017
  38. DOXYCYCLINE [Concomitant]
     Active Substance: DOXYCYCLINE
     Indication: Infection
     Dates: start: 2013
  39. AMOXICILLIN [Concomitant]
     Active Substance: AMOXICILLIN
     Indication: Infection
     Dates: start: 2017
  40. ATORVASTATIN [Concomitant]
     Active Substance: ATORVASTATIN
     Indication: Hyperlipidaemia
     Dates: start: 2020
  41. LOSARTAN [Concomitant]
     Active Substance: LOSARTAN
     Indication: Hypertension
     Dates: start: 2020, end: 2021

REACTIONS (3)
  - Chronic kidney disease [Not Recovered/Not Resolved]
  - Renal failure [Unknown]
  - Gastrooesophageal reflux disease [Not Recovered/Not Resolved]

NARRATIVE: CASE EVENT DATE: 20130101
